FAERS Safety Report 11981655 (Version 1)
Quarter: 2016Q1

REPORT INFORMATION
  Report Type: Spontaneous
  Country: TW (occurrence: TW)
  Receive Date: 20160131
  Receipt Date: 20160131
  Transmission Date: 20160526
  Serious: Yes (Hospitalization, Other)
  Sender: FDA-Public Use
  Company Number: TW-ROXANE LABORATORIES, INC.-2016-RO-00152RO

PATIENT
  Age: 45 Year
  Sex: Female
  Weight: 42 kg

DRUGS (1)
  1. FUROSEMIDE TABLETS USP, 20 MG [Suspect]
     Active Substance: FUROSEMIDE
     Indication: WEIGHT CONTROL
     Route: 065

REACTIONS (9)
  - Nephrolithiasis [Unknown]
  - Hyperuricaemia [Unknown]
  - Tubulointerstitial nephritis [Recovered/Resolved]
  - Hypokalaemia [Recovered/Resolved]
  - Hypovolaemia [Unknown]
  - Rebound effect [Unknown]
  - Pyelonephritis acute [Unknown]
  - Chronic kidney disease [Unknown]
  - Gouty arthritis [Unknown]
